FAERS Safety Report 14941230 (Version 1)
Quarter: 2018Q2

REPORT INFORMATION
  Report Type: Report from Study
  Country: None (occurrence: US)
  Receive Date: 20180525
  Receipt Date: 20180525
  Transmission Date: 20180711
  Serious: Yes (Hospitalization)
  Sender: FDA-Public Use
  Company Number: US-ABBVIE-18K-163-2351925-00

PATIENT
  Age: 36 Year
  Sex: Male
  Weight: 108.96 kg

DRUGS (1)
  1. HUMIRA [Suspect]
     Active Substance: ADALIMUMAB
     Indication: CROHN^S DISEASE
     Route: 058
     Dates: start: 201711

REACTIONS (4)
  - Frequent bowel movements [Recovered/Resolved]
  - Gastrointestinal oedema [Recovered/Resolved]
  - Procedural pain [Recovered/Resolved]
  - Onychomycosis [Recovering/Resolving]

NARRATIVE: CASE EVENT DATE: 2018
